FAERS Safety Report 10081354 (Version 1)
Quarter: 2014Q2

REPORT INFORMATION
  Report Type: Spontaneous
  Country: US (occurrence: US)
  Receive Date: 20140416
  Receipt Date: 20140416
  Transmission Date: 20141212
  Serious: Yes (Other)
  Sender: FDA-Public Use
  Company Number: US-BAYER-2014-053482

PATIENT
  Age: 21 Year
  Sex: Female

DRUGS (1)
  1. MIRENA [Suspect]
     Indication: CONTRACEPTION
     Dosage: 20 MCG/24HR, CONT
     Route: 015
     Dates: start: 2012

REACTIONS (14)
  - Epilepsy [None]
  - Headache [None]
  - Convulsion [None]
  - Loss of consciousness [None]
  - Somnolence [None]
  - Tongue injury [None]
  - Head injury [None]
  - Memory impairment [None]
  - Pain [None]
  - Muscle spasms [None]
  - Tremor [None]
  - Cyanosis [None]
  - Postictal headache [None]
  - Postictal state [None]
